FAERS Safety Report 17282987 (Version 2)
Quarter: 2020Q2

REPORT INFORMATION
  Report Type: Spontaneous
  Country: US (occurrence: US)
  Receive Date: 20200117
  Receipt Date: 20200421
  Transmission Date: 20200713
  Serious: Yes (Other)
  Sender: FDA-Public Use
  Company Number: US-LUNDBECK-DKLU3010316

PATIENT
  Age: 33 Year
  Sex: Female

DRUGS (1)
  1. SABRIL [Suspect]
     Active Substance: VIGABATRIN
     Indication: PRODUCT USED FOR UNKNOWN INDICATION
     Dosage: STOPPED DRUG BETWEEN 2.5-3 YEARS AGO
     Route: 065

REACTIONS (3)
  - Condition aggravated [Unknown]
  - Weight increased [Unknown]
  - Visual impairment [Unknown]
